FAERS Safety Report 15564575 (Version 2)
Quarter: 2018Q4

REPORT INFORMATION
  Report Type: Report from Study
  Country: US (occurrence: US)
  Receive Date: 20181030
  Receipt Date: 20181106
  Transmission Date: 20190205
  Serious: Yes (Hospitalization, Other)
  Sender: FDA-Public Use
  Company Number: US-AMGEN INC.-USASL2018138389

PATIENT
  Age: 53 Year
  Sex: Male

DRUGS (2)
  1. AIMOVIG [Suspect]
     Active Substance: ERENUMAB-AOOE
     Indication: MIGRAINE
     Dosage: 70 MG, UNK
     Route: 065
     Dates: start: 20180911
  2. MOVANTIK [Concomitant]
     Active Substance: NALOXEGOL OXALATE
     Indication: CONSTIPATION
     Dosage: UNK
     Route: 065

REACTIONS (10)
  - Constipation [Unknown]
  - Bladder obstruction [Unknown]
  - Pharyngitis streptococcal [Unknown]
  - Pain [Recovering/Resolving]
  - Fluid retention [Unknown]
  - Dyspnoea [Unknown]
  - Adverse event [Unknown]
  - Oral candidiasis [Unknown]
  - Hypertension [Unknown]
  - Weight increased [Unknown]

NARRATIVE: CASE EVENT DATE: 2018
